FAERS Safety Report 17779714 (Version 2)
Quarter: 2020Q3

REPORT INFORMATION
  Report Type: Spontaneous
  Country: US (occurrence: US)
  Receive Date: 20200513
  Receipt Date: 20200911
  Transmission Date: 20201102
  Serious: No
  Sender: FDA-Public Use
  Company Number: US-SA-2020SA123582

PATIENT

DRUGS (2)
  1. DUPIXENT [Suspect]
     Active Substance: DUPILUMAB
     Dosage: 200 MG, QOW
     Route: 058
     Dates: start: 202005
  2. DUPIXENT [Suspect]
     Active Substance: DUPILUMAB
     Indication: DERMATITIS ATOPIC
     Dosage: 2 DF, 1X
     Route: 058
     Dates: start: 20200430, end: 20200430

REACTIONS (5)
  - Eyelid skin dryness [Unknown]
  - Eyelid exfoliation [Unknown]
  - Product use issue [Unknown]
  - Eczema eyelids [Unknown]
  - Eczema [Unknown]

NARRATIVE: CASE EVENT DATE: 2020
